FAERS Safety Report 13152787 (Version 1)
Quarter: 2017Q1

REPORT INFORMATION
  Report Type: Spontaneous
  Country: AR (occurrence: AR)
  Receive Date: 20170125
  Receipt Date: 20170125
  Transmission Date: 20170428
  Serious: Yes (Other)
  Sender: FDA-Public Use
  Company Number: AR-AMGEN-ARGSP2017012256

PATIENT
  Age: 51 Year
  Sex: Male

DRUGS (1)
  1. ENBREL [Suspect]
     Active Substance: ETANERCEPT
     Indication: RHEUMATOID ARTHRITIS
     Dosage: 25 MG, EVERY 5 DAYS
     Route: 065
     Dates: start: 20110113

REACTIONS (3)
  - Abasia [Recovering/Resolving]
  - Product use issue [Not Recovered/Not Resolved]
  - Chondropathy [Recovering/Resolving]

NARRATIVE: CASE EVENT DATE: 20110113
